FAERS Safety Report 11397907 (Version 1)
Quarter: 2015Q3

REPORT INFORMATION
  Report Type: Spontaneous
  Country: US (occurrence: US)
  Receive Date: 20150819
  Receipt Date: 20150819
  Transmission Date: 20151125
  Serious: Yes (Other)
  Sender: FDA-Public Use
  Company Number: US-AMGEN-USASP2015083921

PATIENT
  Age: 48 Year
  Sex: Male

DRUGS (1)
  1. ENBREL [Suspect]
     Active Substance: ETANERCEPT
     Indication: RHEUMATOID ARTHRITIS
     Dosage: 50 MG, UNK
     Route: 065

REACTIONS (9)
  - Device issue [Unknown]
  - Musculoskeletal stiffness [Unknown]
  - Ejaculation disorder [Unknown]
  - Injection site pain [Unknown]
  - Postoperative fever [Unknown]
  - Gait disturbance [Unknown]
  - Visual acuity reduced [Unknown]
  - Gallbladder operation [Unknown]
  - Hernia repair [Unknown]

NARRATIVE: CASE EVENT DATE: 20150805
